FAERS Safety Report 5160583-3 (Version None)
Quarter: 2006Q4

REPORT INFORMATION
  Report Type: 
  Country: None (occurrence: None)
  Receive Date: 20061129
  Receipt Date: 20061122
  Transmission Date: 20070319
  Serious: Yes (Life-Threatening)
  Sender: FDA-Public Use
  Company Number: NL-MERCK-0611NLD00028

PATIENT
  Age: 50 Year
  Sex: Male

DRUGS (4)
  1. ZETIA [Suspect]
     Route: 048
     Dates: start: 20050101
  2. LEVODOPA AND CARBIDOPA AND ENTACAPONE [Concomitant]
     Indication: PARKINSON'S DISEASE
     Route: 048
     Dates: start: 20051101, end: 20060801
  3. LEUPROLIDE ACETATE [Concomitant]
     Indication: PROSTATE CANCER
     Route: 065
     Dates: start: 20040101
  4. CLOZAPINE [Concomitant]
     Route: 065
     Dates: start: 20051031

REACTIONS (2)
  - NAUSEA [None]
  - VOMITING [None]
